FAERS Safety Report 10259335 (Version 1)
Quarter: 2014Q2

REPORT INFORMATION
  Report Type: Spontaneous
  Country: US (occurrence: US)
  Receive Date: 20140625
  Receipt Date: 20140625
  Transmission Date: 20141212
  Serious: No
  Sender: FDA-Public Use
  Company Number: US-ASTELLAS-2014US002162

PATIENT
  Sex: Female

DRUGS (2)
  1. VESICARE [Suspect]
     Indication: PRODUCT USED FOR UNKNOWN INDICATION
     Dosage: 5 MG, DAILY
     Route: 048
     Dates: start: 201302, end: 20140125
  2. VESICARE [Suspect]
     Dosage: 10 MG, DAILY (TWO 5 MG TABLETS)
     Route: 048
     Dates: start: 20140125

REACTIONS (3)
  - Drug ineffective [Unknown]
  - Pollakiuria [Unknown]
  - Constipation [Unknown]
